FAERS Safety Report 20939005 (Version 1)
Quarter: 2022Q2

REPORT INFORMATION
  Report Type: Report from Study
  Country: IT (occurrence: IT)
  Receive Date: 20220609
  Receipt Date: 20220609
  Transmission Date: 20220721
  Serious: Yes (Hospitalization)
  Sender: FDA-Public Use
  Company Number: IT-002147023-NVSC2022IT122311

PATIENT
  Age: 45 Year
  Sex: Male

DRUGS (1)
  1. FINGOLIMOD [Suspect]
     Active Substance: FINGOLIMOD
     Indication: Multiple sclerosis
     Dosage: UNK,CAPSULE HARD
     Route: 048

REACTIONS (3)
  - COVID-19 [Recovered/Resolved]
  - Multiple sclerosis [Recovered/Resolved]
  - Lymphocyte count decreased [Recovered/Resolved]
